FAERS Safety Report 7962248-9 (Version None)
Quarter: 2011Q4

REPORT INFORMATION
  Report Type: 
  Country: None (occurrence: None)
  Receive Date: 20111205
  Receipt Date: 20111121
  Transmission Date: 20120403
  Serious: Yes (Hospitalization, Other)
  Sender: FDA-Public Use
  Company Number: 2011P1009516

PATIENT
  Age: 19 Month
  Sex: Female
  Weight: 13.6079 kg

DRUGS (4)
  1. ZYRTEC [Concomitant]
  2. IBUPROFEN (ADVIL) [Concomitant]
  3. CETIRIZINE HYDROCHLORIDE [Suspect]
     Indication: NASOPHARYNGITIS
     Dosage: 10 MG; X1; PO
     Route: 048
     Dates: start: 20111013, end: 20111013
  4. QTC COUGH MEDICATION (NO PREF. NAME) [Suspect]

REACTIONS (15)
  - FEBRILE CONVULSION [None]
  - VOMITING [None]
  - LEUKOCYTOSIS [None]
  - PHARYNGEAL ERYTHEMA [None]
  - NAUSEA [None]
  - HAEMATOCRIT DECREASED [None]
  - BLOOD BICARBONATE DECREASED [None]
  - BODY TEMPERATURE INCREASED [None]
  - BLOOD CHLORIDE INCREASED [None]
  - URINE KETONE BODY PRESENT [None]
  - BRONCHIAL HYPERREACTIVITY [None]
  - SINUSITIS [None]
  - HAEMOGLOBIN DECREASED [None]
  - ALBUMIN URINE PRESENT [None]
  - RESPIRATORY TRACT INFECTION VIRAL [None]
